FAERS Safety Report 23762044 (Version 1)
Quarter: 2024Q2

REPORT INFORMATION
  Report Type: Spontaneous
  Country: UA (occurrence: UA)
  Receive Date: 20240419
  Receipt Date: 20240419
  Transmission Date: 20240716
  Serious: Yes (Death)
  Sender: FDA-Public Use
  Company Number: UA-MYLANLABS-2024M1035287

PATIENT
  Age: 44 Year
  Sex: Male

DRUGS (4)
  1. PRETOMANID [Suspect]
     Active Substance: PRETOMANID
     Indication: Disseminated tuberculosis
     Dosage: 1 DOSAGE FORM, QD
     Route: 048
     Dates: start: 20231124, end: 20240310
  2. LINEZOLID [Suspect]
     Active Substance: LINEZOLID
     Indication: Disseminated tuberculosis
     Dosage: 1 DOSAGE FORM, QD (1 FILM-COATED TABLET CONTAINS 600 MG OF LINEZOLID)
     Route: 048
     Dates: start: 20231124, end: 20240310
  3. MOXIFLOXACIN [Suspect]
     Active Substance: MOXIFLOXACIN
     Indication: Disseminated tuberculosis
     Dosage: 1 DOSAGE FORM, QD(1 TAB CONTAIN 436.8MG OF MOXIFLOXACIN HYDROCHLORIDE, WHICH IS EQUIVALENT TO 400MG
     Route: 048
     Dates: start: 20231124, end: 20240310
  4. BEDAQUILINE [Suspect]
     Active Substance: BEDAQUILINE
     Indication: Disseminated tuberculosis
     Dosage: 2 DOSAGE FORM, 3XW (1TAB CONTAINS BEDAQUILINE FUMARATE 120.89MG (EQUIVALENT TO 100MG OF BEDAQUILINE)
     Route: 048
     Dates: start: 20231124, end: 20240310

REACTIONS (1)
  - Death [Fatal]

NARRATIVE: CASE EVENT DATE: 20240310
